FAERS Safety Report 17199856 (Version 3)
Quarter: 2020Q1

REPORT INFORMATION
  Report Type: Spontaneous
  Country: GB (occurrence: GB)
  Receive Date: 20191226
  Receipt Date: 20200114
  Transmission Date: 20200409
  Serious: Yes (Hospitalization, Other)
  Sender: FDA-Public Use
  Company Number: GB-009507513-1912GBR010518

PATIENT
  Age: 78 Year
  Sex: Male

DRUGS (2)
  1. PENICILLIN (UNSPECIFIED) [Concomitant]
     Active Substance: PENICILLIN
     Dosage: UNK
     Route: 042
     Dates: start: 2019
  2. KEYTRUDA [Suspect]
     Active Substance: PEMBROLIZUMAB
     Dosage: 200 MILLIGRAM
     Dates: start: 2019

REACTIONS (4)
  - Hypotension [Unknown]
  - Infection [Recovered/Resolved]
  - Product dose omission [Unknown]
  - Hepatitis [Unknown]

NARRATIVE: CASE EVENT DATE: 201912
